FAERS Safety Report 24875556 (Version 1)
Quarter: 2025Q1

REPORT INFORMATION
  Report Type: Spontaneous
  Country: US (occurrence: US)
  Receive Date: 20250122
  Receipt Date: 20250122
  Transmission Date: 20250408
  Serious: Yes (Other)
  Sender: ELI LILLY AND COMPANY
  Company Number: US-ELI_LILLY_AND_COMPANY-US202501008765

PATIENT
  Age: 77 Year
  Sex: Female

DRUGS (1)
  1. HUMULIN 70/30 [Suspect]
     Active Substance: INSULIN HUMAN
     Indication: Product used for unknown indication
     Route: 065

REACTIONS (4)
  - Myocardial infarction [Unknown]
  - Diabetic retinopathy [Unknown]
  - COVID-19 [Unknown]
  - Injury associated with device [Unknown]

NARRATIVE: CASE EVENT DATE: 20250114
